FAERS Safety Report 24415848 (Version 1)
Quarter: 2024Q4

REPORT INFORMATION
  Report Type: Spontaneous
  Country: US (occurrence: US)
  Receive Date: 20241009
  Receipt Date: 20241009
  Transmission Date: 20250115
  Serious: No
  Sender: AILEX PHARMACEUTICALS
  Company Number: US-AP-2024-6165

PATIENT
  Age: 67 Year
  Sex: Female

DRUGS (1)
  1. CROMOLYN SODIUM [Suspect]
     Active Substance: CROMOLYN SODIUM
     Indication: Mast cell activation syndrome
     Route: 048

REACTIONS (6)
  - Product label confusion [Unknown]
  - Dose calculation error [Unknown]
  - Therapy interrupted [Unknown]
  - Intercepted product prescribing error [Unknown]
  - Product dispensing error [Unknown]
  - Product storage error [Unknown]
